FAERS Safety Report 6984431-1 (Version None)
Quarter: 2010Q3

REPORT INFORMATION
  Report Type: 
  Country: None (occurrence: None)
  Receive Date: 20100915
  Receipt Date: 20100909
  Transmission Date: 20110219
  Serious: Yes (Other)
  Sender: FDA-Public Use
  Company Number: US-RB-010089-10

PATIENT
  Age: 32 Year
  Sex: Female

DRUGS (1)
  1. SUBOXONE [Suspect]
     Indication: PRODUCT USED FOR UNKNOWN INDICATION
     Dosage: UNKNOWN DOSING DETAILS
     Route: 065

REACTIONS (6)
  - CYSTITIS [None]
  - DEPRESSION [None]
  - DRUG DEPENDENCE [None]
  - HOT FLUSH [None]
  - HYPERHIDROSIS [None]
  - SUICIDAL IDEATION [None]
